FAERS Safety Report 8635169 (Version 2)
Quarter: 2013Q1

REPORT INFORMATION
  Report Type: Spontaneous
  Country: CO (occurrence: None)
  Receive Date: 20120613
  Receipt Date: 20121120
  Transmission Date: 20140127
  Serious: Yes (Life-Threatening, Hospitalization)
  Sender: FDA-Public Use
  Company Number: DSU-2012-04422

PATIENT
  Age: 66 Year
  Sex: Female

DRUGS (5)
  1. OLMETEC HCT [Suspect]
     Indication: HYPERTENSION
     Dosage: 40/12.5 MG (QD), PER ORAL
     Route: 048
     Dates: start: 2010
  2. CARDIOSAWIN (ACETYLSALICYLIC ACID) [Concomitant]
  3. ZOLPIDEM [Concomitant]
  4. LOVAZA [Concomitant]
  5. DOLEX (PARACETAMOL) [Concomitant]

REACTIONS (6)
  - White blood cell count decreased [None]
  - Gallbladder operation [None]
  - Malaise [None]
  - Platelet count decreased [None]
  - Memory impairment [None]
  - Spinal fracture [None]
